FAERS Safety Report 19575842 (Version 5)
Quarter: 2022Q2

REPORT INFORMATION
  Report Type: Report from Study
  Country: CA (occurrence: CA)
  Receive Date: 20210719
  Receipt Date: 20220517
  Transmission Date: 20220720
  Serious: Yes (Other)
  Sender: FDA-Public Use
  Company Number: CA-HLS-202107917

PATIENT
  Sex: Male

DRUGS (2)
  1. CLOZARIL [Suspect]
     Active Substance: CLOZAPINE
     Indication: Product used for unknown indication
     Dosage: UNKNOWN
     Route: 048
     Dates: start: 20210528
  2. LEVODOPA [Suspect]
     Active Substance: LEVODOPA
     Dosage: UNKNOWN
     Route: 065

REACTIONS (6)
  - Nervous system disorder [Unknown]
  - Hallucination, auditory [Unknown]
  - Delusion [Unknown]
  - General physical health deterioration [Unknown]
  - Off label use [Unknown]
  - Gait disturbance [Unknown]
